FAERS Safety Report 12797632 (Version 1)
Quarter: 2016Q3

REPORT INFORMATION
  Report Type: Spontaneous
  Country: US (occurrence: US)
  Receive Date: 20160929
  Receipt Date: 20160929
  Transmission Date: 20161109
  Serious: Yes (Other)
  Sender: FDA-Public Use
  Company Number: None

PATIENT
  Age: 58 Year
  Sex: Male
  Weight: 79.2 kg

DRUGS (27)
  1. MEDROL [Concomitant]
     Active Substance: METHYLPREDNISOLONE
  2. ISOSORBIDE DINATRATE [Concomitant]
  3. NAMENDA [Concomitant]
     Active Substance: MEMANTINE HYDROCHLORIDE
  4. HIZENTRA [Suspect]
     Active Substance: HUMAN IMMUNOGLOBULIN G
     Indication: IMMUNODEFICIENCY COMMON VARIABLE
     Dosage: ?          OTHER FREQUENCY:WEEKLY;?
     Route: 058
     Dates: start: 20160819, end: 20160922
  5. CELEBREX [Concomitant]
     Active Substance: CELECOXIB
  6. TESTOSTERONE CYPIONATE. [Concomitant]
     Active Substance: TESTOSTERONE CYPIONATE
  7. TOPAMAX [Concomitant]
     Active Substance: TOPIRAMATE
  8. RANITIDINE. [Concomitant]
     Active Substance: RANITIDINE
  9. PERCOCET [Concomitant]
     Active Substance: ACETAMINOPHEN\OXYCODONE HYDROCHLORIDE
  10. QUINAPRIL. [Concomitant]
     Active Substance: QUINAPRIL
  11. METOPROLOL TARTRATE. [Concomitant]
     Active Substance: METOPROLOL TARTRATE
  12. OXYCONTIN [Concomitant]
     Active Substance: OXYCODONE HYDROCHLORIDE
  13. PROAIR HFA [Concomitant]
     Active Substance: ALBUTEROL SULFATE
  14. TRICOR [Concomitant]
     Active Substance: FENOFIBRATE
  15. SINGULAIR [Concomitant]
     Active Substance: MONTELUKAST SODIUM
  16. DOXYCYCLINE. [Concomitant]
     Active Substance: DOXYCYCLINE
  17. KEFLEX [Concomitant]
     Active Substance: CEPHALEXIN
  18. LAMICTAL [Concomitant]
     Active Substance: LAMOTRIGINE
  19. SYMBICORT [Concomitant]
     Active Substance: BUDESONIDE\FORMOTEROL FUMARATE DIHYDRATE
  20. RANEXA [Concomitant]
     Active Substance: RANOLAZINE
  21. DIPHENHYDRAMINE. [Concomitant]
     Active Substance: DIPHENHYDRAMINE
  22. ASPIRIN. [Concomitant]
     Active Substance: ASPIRIN
  23. FETZIMA [Concomitant]
     Active Substance: LEVOMILNACIPRAN HYDROCHLORIDE
  24. DIAZEPAM. [Concomitant]
     Active Substance: DIAZEPAM
  25. ACETAMINOPHEN. [Concomitant]
     Active Substance: ACETAMINOPHEN
  26. AMLODIPINE [Concomitant]
     Active Substance: AMLODIPINE BESYLATE
  27. BIAXIN [Concomitant]
     Active Substance: CLARITHROMYCIN

REACTIONS (4)
  - Dyspnoea [None]
  - Fatigue [None]
  - Chest pain [None]
  - Drug ineffective [None]

NARRATIVE: CASE EVENT DATE: 20160915
